FAERS Safety Report 15348076 (Version 1)
Quarter: 2018Q3

REPORT INFORMATION
  Report Type: Spontaneous
  Country: US (occurrence: US)
  Receive Date: 20180904
  Receipt Date: 20180904
  Transmission Date: 20181010
  Serious: No
  Sender: FDA-Public Use
  Company Number: US-TEVA-2018-US-949686

PATIENT
  Sex: Male

DRUGS (1)
  1. LORAZEPAM. [Suspect]
     Active Substance: LORAZEPAM
     Indication: ANXIETY
     Dosage: THREE TIMES A WEEK BEFORE BED
     Route: 065

REACTIONS (3)
  - Amnesia [Unknown]
  - Drug prescribing error [Unknown]
  - Confusional state [Unknown]

NARRATIVE: CASE EVENT DATE: 20180827
